FAERS Safety Report 13568381 (Version 1)
Quarter: 2017Q2

REPORT INFORMATION
  Report Type: Spontaneous
  Country: US (occurrence: US)
  Receive Date: 20170522
  Receipt Date: 20170522
  Transmission Date: 20170830
  Serious: Yes (Other)
  Sender: FDA-Public Use
  Company Number: US-WEST-WARD PHARMACEUTICALS CORP.-US-H14001-17-01622

PATIENT
  Age: 53 Year

DRUGS (2)
  1. HEPARIN [Suspect]
     Active Substance: HEPARIN SODIUM
     Indication: ASPIRATION BONE MARROW
     Route: 065
     Dates: start: 20100707, end: 20100707
  2. NORMAL SALINE [Suspect]
     Active Substance: SODIUM CHLORIDE
     Indication: ASPIRATION BONE MARROW
     Route: 065
     Dates: start: 20100707, end: 20100707

REACTIONS (1)
  - Transmission of an infectious agent via product [Recovered/Resolved]
